FAERS Safety Report 20096355 (Version 1)
Quarter: 2021Q4

REPORT INFORMATION
  Report Type: Spontaneous
  Country: US (occurrence: None)
  Receive Date: 20211119
  Receipt Date: 20211119
  Transmission Date: 20220304
  Serious: No
  Sender: FDA-Public Use
  Company Number: None

PATIENT
  Sex: Female
  Weight: 88.78 kg

DRUGS (1)
  1. BENLYSTA [Suspect]
     Active Substance: BELIMUMAB
     Route: 041
     Dates: start: 20211119, end: 20211119

REACTIONS (4)
  - Infusion related reaction [None]
  - Urticaria [None]
  - Throat irritation [None]
  - Pruritus [None]
